FAERS Safety Report 7929136-5 (Version None)
Quarter: 2011Q4

REPORT INFORMATION
  Report Type: 
  Country: None (occurrence: None)
  Receive Date: 20111119
  Receipt Date: 20111107
  Transmission Date: 20120403
  Serious: Yes (Hospitalization)
  Sender: FDA-Public Use
  Company Number: US-ELI_LILLY_AND_COMPANY-US201010006814

PATIENT
  Sex: Female

DRUGS (11)
  1. LEVOTHYROXINE SODIUM [Concomitant]
  2. ARICEPT [Concomitant]
  3. MIRALAX [Concomitant]
  4. FORTEO [Suspect]
     Dosage: 20 UG, QD
  5. CALCIUM [Concomitant]
  6. FORTEO [Suspect]
     Indication: OSTEOPOROSIS
     Dosage: 20 UG, DAILY (1/D)
     Dates: start: 20101001
  7. OMEPRAZOLE [Concomitant]
  8. CARVEDILOL [Concomitant]
  9. IRON [Concomitant]
  10. VITAMIN TAB [Concomitant]
  11. ASPIRIN [Concomitant]

REACTIONS (8)
  - DYSPNOEA [None]
  - NERVOUSNESS [None]
  - CHRONIC OBSTRUCTIVE PULMONARY DISEASE [None]
  - SCLERODERMA [None]
  - PULMONARY HYPERTENSION [None]
  - ASTHMA [None]
  - ARRHYTHMIA [None]
  - EMPHYSEMA [None]
